FAERS Safety Report 7294283-0 (Version None)
Quarter: 2011Q1

REPORT INFORMATION
  Report Type: 
  Country: None (occurrence: None)
  Receive Date: 20110215
  Receipt Date: 20110121
  Transmission Date: 20110831
  Serious: No
  Sender: FDA-Public Use
  Company Number: US-B.I. PHARMACEUTICALS,INC./RIDGEFIELD-2011-BP-02247BP

PATIENT
  Sex: Female

DRUGS (5)
  1. PRADAXA [Suspect]
     Indication: ATRIAL FIBRILLATION
     Dosage: 300 MG
     Route: 048
     Dates: start: 20101201
  2. HYDROCHLOROTHIAZIDE [Concomitant]
  3. CRESTOR [Concomitant]
     Indication: PROPHYLAXIS
  4. SYNTHROID [Concomitant]
     Indication: HYPOTHYROIDISM
  5. SOTALOL HCL [Concomitant]
     Indication: ATRIAL FIBRILLATION

REACTIONS (3)
  - LACERATION [None]
  - WOUND HAEMORRHAGE [None]
  - DYSPEPSIA [None]
